FAERS Safety Report 24831305 (Version 1)
Quarter: 2025Q1

REPORT INFORMATION
  Report Type: Spontaneous
  Country: FR (occurrence: FR)
  Receive Date: 20250110
  Receipt Date: 20250110
  Transmission Date: 20250409
  Serious: Yes (Hospitalization)
  Sender: TEVA
  Company Number: None

PATIENT
  Age: 65 Year
  Sex: Male

DRUGS (3)
  1. METHOTREXATE [Suspect]
     Active Substance: METHOTREXATE
     Indication: Psoriatic arthropathy
     Route: 058
     Dates: start: 2021, end: 20241030
  2. ANAKINRA [Suspect]
     Active Substance: ANAKINRA
     Indication: Psoriatic arthropathy
     Dosage: ANAKINRA ((BACTERIE/ESCHERICHIA COLI))
     Route: 058
     Dates: start: 202312, end: 20241030
  3. STELARA [Suspect]
     Active Substance: USTEKINUMAB
     Indication: Psoriatic arthropathy
     Route: 042
     Dates: start: 202301, end: 20241030

REACTIONS (1)
  - Neurocryptococcosis [Recovering/Resolving]

NARRATIVE: CASE EVENT DATE: 20240701
